FAERS Safety Report 24737858 (Version 1)
Quarter: 2024Q4

REPORT INFORMATION
  Report Type: Spontaneous
  Country: CA (occurrence: CA)
  Receive Date: 20241216
  Receipt Date: 20241216
  Transmission Date: 20250114
  Serious: Yes (Other)
  Sender: HIKMA
  Company Number: CA-HIKMA PHARMACEUTICALS-CA-H14001-24-11372

PATIENT

DRUGS (1)
  1. CISPLATIN [Suspect]
     Active Substance: CISPLATIN
     Indication: Non-small cell lung cancer
     Dosage: UNKNOWN, CYCLICAL
     Route: 065

REACTIONS (6)
  - Hepatic artery thrombosis [Unknown]
  - Hepatic infarction [Unknown]
  - Portal vein thrombosis [Unknown]
  - Splenic artery thrombosis [Unknown]
  - Splenic infarction [Unknown]
  - Off label use [Unknown]
